FAERS Safety Report 6782366-0 (Version None)
Quarter: 2010Q2

REPORT INFORMATION
  Report Type: 
  Country: None (occurrence: None)
  Receive Date: 20100621
  Receipt Date: 20100608
  Transmission Date: 20101027
  Serious: Yes (Other)
  Sender: FDA-Public Use
  Company Number: PHEH2010US03145

PATIENT

DRUGS (1)
  1. ZOMETA [Suspect]
     Dosage: UNK

REACTIONS (5)
  - GINGIVAL DISORDER [None]
  - LOOSE TOOTH [None]
  - PERIODONTITIS [None]
  - POOR PERSONAL HYGIENE [None]
  - TOOTH EXTRACTION [None]
